FAERS Safety Report 5663897-3 (Version None)
Quarter: 2008Q1

REPORT INFORMATION
  Report Type: 
  Country: None (occurrence: None)
  Receive Date: 20080311
  Receipt Date: 20080303
  Transmission Date: 20080703
  Serious: Yes (Life-Threatening, Hospitalization)
  Sender: FDA-Public Use
  Company Number: ADE2008-0143

PATIENT
  Age: 68 Year
  Sex: Male
  Weight: 71 kg

DRUGS (6)
  1. METFORMIN HYDROCHLORIDE [Suspect]
     Dosage: 1G .3 X DAILY- PO
     Route: 048
  2. ASPIRIN [Concomitant]
  3. ATORVASTATIN CALCIUM [Concomitant]
  4. ROSIGLITAZONE [Concomitant]
  5. SPIRONOLACTONE [Concomitant]
  6. IRBESARTAN AND HCTZ [Concomitant]

REACTIONS (4)
  - ACIDOSIS [None]
  - DIARRHOEA [None]
  - RENAL FAILURE [None]
  - VOMITING [None]
